FAERS Safety Report 6784881-2 (Version None)
Quarter: 2010Q2

REPORT INFORMATION
  Report Type: 
  Country: None (occurrence: None)
  Receive Date: 20100618
  Receipt Date: 20100608
  Transmission Date: 20101027
  Serious: Yes (Hospitalization)
  Sender: FDA-Public Use
  Company Number: 230461J10USA

PATIENT
  Age: 55 Year
  Sex: Female
  Weight: 77 kg

DRUGS (12)
  1. REBIF [Suspect]
     Indication: MULTIPLE SCLEROSIS
     Dosage: 44 MCG, 3 IN 1 WK, SUBCUTANEOUS
     Route: 058
     Dates: start: 20030819
  2. ATENOLOL [Concomitant]
  3. NEXIUM [Concomitant]
  4. LOVASTATIN [Concomitant]
  5. REMERON [Concomitant]
  6. SOLU-MEDROL [Concomitant]
  7. CALCIUM CARBONATE [Concomitant]
  8. ZOMIG [Concomitant]
  9. LISINOPRIL [Concomitant]
  10. TYLENOL # 3(GALENIC /PARACETAMOL/CODEINE/) [Concomitant]
  11. NAPROSYN [Concomitant]
  12. MOTRIN [Concomitant]

REACTIONS (8)
  - ATRIAL FIBRILLATION [None]
  - BLOOD POTASSIUM DECREASED [None]
  - CARDIAC ENZYMES INCREASED [None]
  - CHEST PAIN [None]
  - HEART RATE INCREASED [None]
  - HYPOTENSION [None]
  - MIGRAINE [None]
  - POOR VENOUS ACCESS [None]
